FAERS Safety Report 9518715 (Version 2)
Quarter: 2013Q4

REPORT INFORMATION
  Report Type: Report from Study
  Country: CA (occurrence: CA)
  Receive Date: 20130912
  Receipt Date: 20131213
  Transmission Date: 20140711
  Serious: Yes (Other)
  Sender: FDA-Public Use
  Company Number: CA-JNJFOC-20130902671

PATIENT
  Age: 41 Year
  Sex: Male
  Weight: 82 kg

DRUGS (6)
  1. REMICADE [Suspect]
     Indication: COLITIS ULCERATIVE
     Route: 042
     Dates: start: 20110901
  2. PREDNISONE [Suspect]
     Indication: COLITIS ULCERATIVE
     Route: 065
  3. PREDNISONE [Suspect]
     Indication: COLITIS ULCERATIVE
     Route: 065
  4. AMLODIPINE [Concomitant]
     Indication: BLOOD PRESSURE
     Route: 065
  5. FERROUS GLUCONATE [Concomitant]
     Route: 065
  6. RANITIDINE [Concomitant]
     Route: 065

REACTIONS (6)
  - Blood creatine increased [Recovering/Resolving]
  - Swelling face [Unknown]
  - Tubulointerstitial nephritis [Recovering/Resolving]
  - Focal segmental glomerulosclerosis [Recovering/Resolving]
  - Fatigue [Unknown]
  - Hypertension [Unknown]
